FAERS Safety Report 10159405 (Version 1)
Quarter: 2014Q2

REPORT INFORMATION
  Report Type: Spontaneous
  Country: ES (occurrence: None)
  Receive Date: 20140506
  Receipt Date: 20140506
  Transmission Date: 20141212
  Serious: Yes (Other)
  Sender: FDA-Public Use
  Company Number: FK201401575

PATIENT
  Age: 54 Year
  Sex: Female

DRUGS (3)
  1. CEFTRIAXONE [Suspect]
     Indication: PNEUMONIA
     Route: 042
     Dates: start: 20140207, end: 20140212
  2. OSELTAMIVIR [Suspect]
     Indication: H1N1 INFLUENZA
     Route: 048
     Dates: start: 20140211, end: 20140217
  3. AZITROMICINA [Suspect]
     Indication: PNEUMONIA
     Route: 048
     Dates: start: 20140207, end: 20140212

REACTIONS (1)
  - Hepatotoxicity [None]
